FAERS Safety Report 9174587 (Version 2)
Quarter: 2013Q2

REPORT INFORMATION
  Report Type: Spontaneous
  Country: US (occurrence: US)
  Receive Date: 20130320
  Receipt Date: 20130422
  Transmission Date: 20140414
  Serious: Yes (Hospitalization, Other)
  Sender: FDA-Public Use
  Company Number: US-PFIZER INC-2013088051

PATIENT
  Age: 80 Year
  Sex: Female
  Weight: 76.64 kg

DRUGS (8)
  1. ZOLOFT [Suspect]
     Indication: ANXIETY
     Dosage: 50 MG, 1X/DAY
     Route: 048
  2. LIPITOR [Suspect]
     Indication: BLOOD CHOLESTEROL INCREASED
     Dosage: 80 MG, 1X/DAY
     Route: 048
  3. ACCUPRIL [Suspect]
     Indication: HYPERTENSION
     Dosage: 80 MG, 1X/DAY
     Route: 048
  4. TRILIPIX [Concomitant]
     Dosage: 135 MG, 1X/DAY
  5. TRADJENTA [Concomitant]
     Dosage: 5 MG, 1X/DAY
  6. CLOPIDOGREL [Concomitant]
     Dosage: 75 MG, 2X/DAY
  7. ASPIRIN [Concomitant]
     Dosage: 81 MG, 1X/DAY
  8. LEVEMIR [Concomitant]
     Dosage: 35 IU, 1X/DAY

REACTIONS (8)
  - Hypoacusis [Unknown]
  - Carotid artery disease [Unknown]
  - Angiopathy [Unknown]
  - Renal vessel disorder [Unknown]
  - Peripheral vascular disorder [Unknown]
  - Insomnia [Unknown]
  - Pain [Unknown]
  - Drug effect incomplete [Unknown]
